FAERS Safety Report 8109000-1 (Version None)
Quarter: 2012Q1

REPORT INFORMATION
  Report Type: 
  Country: None (occurrence: None)
  Receive Date: 20120202
  Receipt Date: 20120106
  Transmission Date: 20120608
  Serious: No
  Sender: FDA-Public Use
  Company Number: US-AMGEN-USASP2012001043

PATIENT
  Sex: Female

DRUGS (1)
  1. ENBREL [Suspect]
     Indication: RHEUMATOID ARTHRITIS
     Dosage: UNK
     Dates: start: 19990301

REACTIONS (4)
  - ERYTHEMA [None]
  - RED BLOOD CELL SEDIMENTATION RATE INCREASED [None]
  - JOINT SWELLING [None]
  - RHEUMATOID ARTHRITIS [None]
